FAERS Safety Report 10788309 (Version 1)
Quarter: 2015Q1

REPORT INFORMATION
  Report Type: Spontaneous
  Country: US (occurrence: US)
  Receive Date: 20150212
  Receipt Date: 20150212
  Transmission Date: 20150721
  Serious: Yes (Other)
  Sender: FDA-Public Use
  Company Number: US-HORIZON-ACT-0024-2015

PATIENT
  Age: 1 Year
  Sex: Male

DRUGS (1)
  1. ACTIMMUNE [Suspect]
     Active Substance: INTERFERON GAMMA-1B
     Indication: CHRONIC GRANULOMATOUS DISEASE
     Route: 058
     Dates: start: 201409

REACTIONS (4)
  - Rash [Unknown]
  - Incorrect product storage [None]
  - Liquid product physical issue [None]
  - Deafness [Unknown]

NARRATIVE: CASE EVENT DATE: 20150130
